FAERS Safety Report 8241107-0 (Version None)
Quarter: 2012Q1

REPORT INFORMATION
  Report Type: 
  Country: None (occurrence: None)
  Receive Date: 20120328
  Receipt Date: 20120323
  Transmission Date: 20120608
  Serious: Yes (Hospitalization)
  Sender: FDA-Public Use
  Company Number: JP-GLAXOSMITHKLINE-B0736475A

PATIENT
  Sex: Male

DRUGS (11)
  1. ZOLPIDEM [Concomitant]
     Dosage: 10MG PER DAY
     Route: 048
  2. FLUNITRAZEPAM [Concomitant]
     Dosage: 2MG PER DAY
     Route: 048
  3. LAMICTAL [Suspect]
     Indication: BIPOLAR I DISORDER
     Dosage: 25MG ALTERNATE DAYS
     Route: 048
     Dates: start: 20110616
  4. DEPAKENE [Suspect]
     Indication: BIPOLAR I DISORDER
     Dosage: 400MG PER DAY
     Route: 048
     Dates: start: 20110402, end: 20110726
  5. PAXIL [Concomitant]
     Indication: BIPOLAR I DISORDER
     Dosage: 20MG PER DAY
     Route: 048
     Dates: end: 20110726
  6. SENNOSIDE [Concomitant]
     Dosage: 3IUAX PER DAY
     Route: 048
  7. ALLOPURINOL [Concomitant]
     Indication: HYPERURICAEMIA
     Dosage: 200MG PER DAY
     Route: 048
     Dates: end: 20110726
  8. U PAN [Concomitant]
     Dosage: 1.5MG PER DAY
     Route: 048
  9. LAMICTAL [Suspect]
     Dosage: 50MG PER DAY
     Route: 048
     Dates: end: 20110719
  10. LITHIUM CARBONATE [Concomitant]
     Indication: BIPOLAR I DISORDER
     Dosage: 600MG PER DAY
     Route: 048
     Dates: end: 20110726
  11. DESYREL [Concomitant]
     Indication: DEPRESSION
     Dosage: 50MG PER DAY
     Route: 048
     Dates: end: 20110726

REACTIONS (22)
  - STEVENS-JOHNSON SYNDROME [None]
  - SKIN EXFOLIATION [None]
  - PYREXIA [None]
  - EPIDERMAL NECROSIS [None]
  - BLOOD LACTATE DEHYDROGENASE INCREASED [None]
  - MALAISE [None]
  - ORAL MUCOSAL ERYTHEMA [None]
  - ERYTHEMA OF EYELID [None]
  - EYE DISCHARGE [None]
  - ERYTHEMA [None]
  - ASPARTATE AMINOTRANSFERASE INCREASED [None]
  - DIZZINESS [None]
  - RASH [None]
  - OROPHARYNGEAL PAIN [None]
  - RASH MACULO-PAPULAR [None]
  - ALANINE AMINOTRANSFERASE INCREASED [None]
  - HYPERTHERMIA [None]
  - CHEILITIS [None]
  - RASH PAPULAR [None]
  - LIP EROSION [None]
  - SOMNOLENCE [None]
  - CONJUNCTIVAL HYPERAEMIA [None]
